FAERS Safety Report 25862314 (Version 1)
Quarter: 2025Q3

REPORT INFORMATION
  Report Type: Spontaneous
  Country: CN (occurrence: CN)
  Receive Date: 20250930
  Receipt Date: 20250930
  Transmission Date: 20251021
  Serious: Yes (Other)
  Sender: SANOFI AVENTIS
  Company Number: CN-MLMSERVICE-20250905-PI632427-00033-1

PATIENT
  Age: 76 Year
  Sex: Female

DRUGS (5)
  1. ASPIRIN [Interacting]
     Active Substance: ASPIRIN
     Indication: Antiplatelet therapy
     Dosage: 100 MG, QD
  2. CLOPIDOGREL BISULFATE [Interacting]
     Active Substance: CLOPIDOGREL BISULFATE
     Indication: Antiplatelet therapy
     Dosage: 75 MG, QD
  3. CLOPIDOGREL BISULFATE [Interacting]
     Active Substance: CLOPIDOGREL BISULFATE
     Indication: Deep vein thrombosis
  4. RIVAROXABAN [Suspect]
     Active Substance: RIVAROXABAN
     Indication: Deep vein thrombosis
     Dosage: 20 MG, QD
  5. LECANEMAB [Interacting]
     Active Substance: LECANEMAB
     Indication: Dementia Alzheimer^s type

REACTIONS (8)
  - Diplopia [Recovering/Resolving]
  - Dizziness [Recovering/Resolving]
  - Eye movement disorder [Recovering/Resolving]
  - Central nervous system lesion [Unknown]
  - Brain stem haemorrhage [Recovering/Resolving]
  - Potentiating drug interaction [Recovering/Resolving]
  - Cerebral microhaemorrhage [Recovering/Resolving]
  - Haemorrhage intracranial [Recovering/Resolving]
